FAERS Safety Report 6737639-4 (Version None)
Quarter: 2010Q2

REPORT INFORMATION
  Report Type: 
  Country: None (occurrence: None)
  Receive Date: 20100521
  Receipt Date: 20100521
  Transmission Date: 20101027
  Serious: Yes (Life-Threatening)
  Sender: FDA-Public Use
  Company Number: None

PATIENT
  Sex: Male
  Weight: 77.1115 kg

DRUGS (1)
  1. FLECAINIDE ACETATE [Suspect]
     Indication: ATRIAL FIBRILLATION
     Dosage: 100 MG TWICE DAILY PO
     Route: 048
     Dates: start: 20080715, end: 20100115

REACTIONS (2)
  - CARDIAC ARREST [None]
  - CORONARY ARTERY OCCLUSION [None]
